FAERS Safety Report 5959114-7 (Version None)
Quarter: 2008Q4

REPORT INFORMATION
  Report Type: 
  Country: None (occurrence: None)
  Receive Date: 20081120
  Receipt Date: 20071227
  Transmission Date: 20090506
  Serious: No
  Sender: FDA-Public Use
  Company Number: A0700572A

PATIENT
  Sex: Female

DRUGS (2)
  1. WELLBUTRIN SR [Suspect]
     Indication: DRUG USE FOR UNKNOWN INDICATION
     Route: 048
     Dates: start: 20071101, end: 20070101
  2. NO CONCURRENT MEDICATION [Concomitant]

REACTIONS (3)
  - AMNESIA [None]
  - DYSKINESIA [None]
  - GENERAL PHYSICAL HEALTH DETERIORATION [None]
